FAERS Safety Report 6630791-0 (Version None)
Quarter: 2010Q1

REPORT INFORMATION
  Report Type: 
  Country: None (occurrence: None)
  Receive Date: 20100311
  Receipt Date: 20100301
  Transmission Date: 20100710
  Serious: Yes (Other)
  Sender: FDA-Public Use
  Company Number: GB-B.I. PHARMACEUTICALS,INC./RIDGEFIELD-2009-UK-01125UK

PATIENT
  Sex: Female

DRUGS (4)
  1. CATAPRES TABLETS (0015/5009R) [Suspect]
     Indication: IMMUNOLOGY TEST
     Dosage: 300 MCG
     Route: 048
     Dates: start: 20091222
  2. AMLODIPINE [Concomitant]
     Dosage: 5 MG
  3. LEVOTHYROXINE SODIUM [Concomitant]
     Dosage: 125 MCG
  4. LOPERAMINE [Concomitant]

REACTIONS (2)
  - DIZZINESS [None]
  - HYPOTENSION [None]
